FAERS Safety Report 19241082 (Version 1)
Quarter: 2021Q2

REPORT INFORMATION
  Report Type: Spontaneous
  Country: US (occurrence: US)
  Receive Date: 20210510
  Receipt Date: 20210510
  Transmission Date: 20210717
  Serious: Yes (Other)
  Sender: FDA-Public Use
  Company Number: None

PATIENT
  Age: 24 Year
  Sex: Female
  Weight: 49.5 kg

DRUGS (5)
  1. CREST PRO?HEALTH CLINICAL [Suspect]
     Active Substance: CETYLPYRIDINIUM CHLORIDE
     Indication: DENTAL DISORDER PROPHYLAXIS
     Dosage: ?          QUANTITY:4 TEASPOON(S);?
     Route: 048
     Dates: start: 20210508, end: 20210510
  2. PEPTO?BISMOL [Concomitant]
     Active Substance: BISMUTH SUBSALICYLATE
  3. WOMEN^S MULTIVITAMIN [Concomitant]
  4. MIRENA [Concomitant]
     Active Substance: LEVONORGESTREL
  5. DICYCLOMINE [Concomitant]
     Active Substance: DICYCLOMINE HYDROCHLORIDE

REACTIONS (1)
  - Ageusia [None]

NARRATIVE: CASE EVENT DATE: 20210510
